FAERS Safety Report 8790735 (Version 1)
Quarter: 2012Q4

REPORT INFORMATION
  Report Type: Spontaneous
  Country: US (occurrence: None)
  Receive Date: 20120913
  Receipt Date: 20120913
  Transmission Date: 20130627
  Serious: Yes (Life-Threatening, Hospitalization)
  Sender: FDA-Public Use
  Company Number: None

PATIENT
  Age: 61 Year
  Sex: Male
  Weight: 181 kg

DRUGS (1)
  1. TYGACIL [Suspect]
     Route: 042
     Dates: start: 20120812, end: 20120822

REACTIONS (1)
  - Pancreatitis [None]
